FAERS Safety Report 7668095-X (Version None)
Quarter: 2011Q3

REPORT INFORMATION
  Report Type: 
  Country: None (occurrence: None)
  Receive Date: 20110808
  Receipt Date: 20110725
  Transmission Date: 20111222
  Serious: Yes (Other)
  Sender: FDA-Public Use
  Company Number: US-JNJFOC-20110711100

PATIENT
  Age: 52 Year
  Sex: Male
  Weight: 90.27 kg

DRUGS (1)
  1. REMICADE [Suspect]
     Indication: COLITIS ULCERATIVE
     Route: 042
     Dates: start: 20050101

REACTIONS (3)
  - PYODERMA GANGRENOSUM [None]
  - WEIGHT DECREASED [None]
  - RASH [None]
